FAERS Safety Report 16598003 (Version 5)
Quarter: 2019Q4

REPORT INFORMATION
  Report Type: Report from Study
  Country: FR (occurrence: FR)
  Receive Date: 20190719
  Receipt Date: 20191118
  Transmission Date: 20200122
  Serious: Yes (Hospitalization, Other)
  Sender: FDA-Public Use
  Company Number: FR-ROCHE-2355871

PATIENT
  Age: 45 Year
  Sex: Female
  Weight: 64.5 kg

DRUGS (3)
  1. ATEZOLIZUMAB. [Suspect]
     Active Substance: ATEZOLIZUMAB
     Indication: NEOPLASM
     Dosage: AND THIS WAS MOST RECENT DOSE PRIOR TO AE/SAE ONSET (12:00)
     Route: 041
     Dates: start: 20190620
  2. RO6874281 (FAP IL2V MAB) [Suspect]
     Active Substance: SIMLUKAFUSP ALFA
     Indication: NEOPLASM
     Dosage: AND THIS WAS MOST RECENT DOSE PRIOR TO AE/SAE ONSET (16:19)
     Route: 042
     Dates: start: 20190620
  3. DOLIPRANE [Concomitant]
     Active Substance: ACETAMINOPHEN
     Route: 065
     Dates: start: 20190821, end: 20190821

REACTIONS (3)
  - Disseminated intravascular coagulation [Recovered/Resolved]
  - Platelet count decreased [Recovered/Resolved]
  - Neutropenia [Not Recovered/Not Resolved]

NARRATIVE: CASE EVENT DATE: 20190711
